FAERS Safety Report 23930426 (Version 2)
Quarter: 2024Q2

REPORT INFORMATION
  Report Type: Spontaneous
  Country: TR (occurrence: TR)
  Receive Date: 20240602
  Receipt Date: 20240611
  Transmission Date: 20240716
  Serious: Yes (Other)
  Sender: FDA-Public Use
  Company Number: TR-JNJFOC-20240567469

PATIENT
  Age: 76 Year
  Sex: Male

DRUGS (2)
  1. ERDAFITINIB [Suspect]
     Active Substance: ERDAFITINIB
     Indication: Transitional cell carcinoma
     Route: 065
     Dates: start: 202304, end: 202306
  2. ERDAFITINIB [Suspect]
     Active Substance: ERDAFITINIB
     Route: 065
     Dates: end: 202306

REACTIONS (3)
  - Serous retinal detachment [Recovered/Resolved]
  - Ulcerative keratitis [Recovering/Resolving]
  - Dry eye [Recovered/Resolved]
